FAERS Safety Report 16743264 (Version 3)
Quarter: 2019Q3

REPORT INFORMATION
  Report Type: Report from Study
  Country: None (occurrence: CH)
  Receive Date: 20190827
  Receipt Date: 20190912
  Transmission Date: 20191005
  Serious: Yes (Death)
  Sender: FDA-Public Use
  Company Number: CH-ABBVIE-19K-151-2902293-00

PATIENT
  Age: 83 Year
  Sex: Female

DRUGS (3)
  1. DUODOPA [Suspect]
     Active Substance: CARBIDOPA\LEVODOPA
     Indication: PARKINSON^S DISEASE
     Route: 050
     Dates: start: 20160127, end: 20160824
  2. DUODOPA [Suspect]
     Active Substance: CARBIDOPA\LEVODOPA
     Dosage: MORNING DOSE: 7.5 ML;?CONTINUOUS RATE DAY: 3.5 ML/H;?EXTRA DOSE: 2 ML?16 H THERAPY
     Route: 050
     Dates: start: 20160824, end: 20180516
  3. DUODOPA [Suspect]
     Active Substance: CARBIDOPA\LEVODOPA
     Dosage: MORNING DOSE: 4.5 ML;?CONTINUOUS RATE DAY: 3.9 ML/H;?EXTRA DOSE: 2 ML?16 H THERAPY
     Route: 050
     Dates: start: 20180516

REACTIONS (1)
  - Cardiac arrest [Fatal]

NARRATIVE: CASE EVENT DATE: 20190825
